FAERS Safety Report 11680899 (Version 2)
Quarter: 2015Q4

REPORT INFORMATION
  Report Type: Spontaneous
  Country: US (occurrence: US)
  Receive Date: 20151027
  Receipt Date: 20151110
  Transmission Date: 20160304
  Serious: No
  Sender: FDA-Public Use
  Company Number: US-ELI_LILLY_AND_COMPANY-US201004000798

PATIENT
  Sex: Female

DRUGS (1)
  1. FORTEO [Suspect]
     Active Substance: TERIPARATIDE
     Dosage: 20 UG, QD
     Route: 058
     Dates: start: 20100129

REACTIONS (8)
  - Constipation [Unknown]
  - Injection site mass [Unknown]
  - Painful defaecation [Unknown]
  - Headache [Unknown]
  - Tremor [Unknown]
  - Intentional product misuse [Unknown]
  - Muscle spasms [Unknown]
  - Arthralgia [Unknown]
